FAERS Safety Report 4278842-5 (Version None)
Quarter: 2004Q1

REPORT INFORMATION
  Report Type: 
  Country: None (occurrence: None)
  Receive Date: 20040126
  Receipt Date: 20030324
  Transmission Date: 20041129
  Serious: No
  Sender: FDA-Public Use
  Company Number: US-BRISTOL-MYERS SQUIBB COMPANY-12220992

PATIENT
  Sex: Female
  Weight: 62 kg

DRUGS (1)
  1. AMPHOTERICIN B FOR INJECTION [Suspect]
     Indication: HISTOPLASMOSIS
     Route: 042
     Dates: start: 20030323

REACTIONS (1)
  - MEDICATION ERROR [None]
